FAERS Safety Report 25651001 (Version 2)
Quarter: 2025Q3

REPORT INFORMATION
  Report Type: Spontaneous
  Country: US (occurrence: US)
  Receive Date: 20250806
  Receipt Date: 20250829
  Transmission Date: 20251020
  Serious: Yes (Death, Hospitalization)
  Sender: TEVA
  Company Number: US-TEVA-VS-3358185

PATIENT
  Age: 70 Year
  Sex: Male

DRUGS (3)
  1. ISONIAZID [Suspect]
     Active Substance: ISONIAZID
     Indication: Pulmonary tuberculosis
     Route: 065
  2. RIFAMPIN [Concomitant]
     Active Substance: RIFAMPIN
     Indication: Pulmonary tuberculosis
     Route: 065
  3. NOREPINEPHRINE [Concomitant]
     Active Substance: NOREPINEPHRINE
     Indication: Hypotension
     Route: 065

REACTIONS (6)
  - Lupus-like syndrome [Fatal]
  - Electrocardiogram QRS complex [Unknown]
  - Respiratory failure [Fatal]
  - Sinus bradycardia [Unknown]
  - Acute kidney injury [Unknown]
  - Pericardial effusion [Unknown]
